FAERS Safety Report 9325472 (Version 1)
Quarter: 2013Q2

REPORT INFORMATION
  Report Type: Report from Study
  Country: US (occurrence: None)
  Receive Date: 20130528
  Receipt Date: 20130528
  Transmission Date: 20140414
  Serious: Yes (Hospitalization)
  Sender: FDA-Public Use
  Company Number: 2013-0862

PATIENT
  Age: 52 Year
  Sex: Female
  Weight: 82.5 kg

DRUGS (3)
  1. CARFILZOMIB [Suspect]
     Indication: PLASMA CELL MYELOMA
     Dates: end: 20130320
  2. LENALIDOMIDE (LENALIDOMIDE) (LENALIDOMIDE) [Concomitant]
  3. DEXAMETHASONE (DEXAMETHASONE) (DEXAMETHASONE) [Concomitant]

REACTIONS (4)
  - Dizziness [None]
  - Labyrinthitis [None]
  - Upper respiratory tract infection [None]
  - White blood cell count decreased [None]
